FAERS Safety Report 8888283 (Version 1)
Quarter: 2012Q4

REPORT INFORMATION
  Report Type: 
  Country: US (occurrence: US)
  Receive Date: 20121106
  Receipt Date: 20121106
  Transmission Date: 20130627
  Serious: Yes (Other)
  Sender: FDA-Public Use
  Company Number: US-PFIZER INC-2012275275

PATIENT
  Sex: Male

DRUGS (1)
  1. ACCUPRIL [Suspect]
     Indication: PROPHYLAXIS
     Dosage: 20 mg, UNK

REACTIONS (2)
  - Off label use [Unknown]
  - Type 1 diabetes mellitus [Unknown]
